FAERS Safety Report 12840248 (Version 2)
Quarter: 2016Q4

REPORT INFORMATION
  Report Type: Spontaneous
  Country: FR (occurrence: FR)
  Receive Date: 20161012
  Receipt Date: 20161215
  Transmission Date: 20170207
  Serious: Yes (Other)
  Sender: FDA-Public Use
  Company Number: FR-009507513-1610FRA003662

PATIENT
  Age: 41 Year
  Sex: Female
  Weight: 59 kg

DRUGS (8)
  1. PREZISTA [Concomitant]
     Active Substance: DARUNAVIR ETHANOLATE
     Dosage: UNK
  2. SPECIAFOLDINE [Concomitant]
     Active Substance: FOLIC ACID
     Dosage: 1 TABLET, QD
     Dates: start: 20160715
  3. BACTRIM [Concomitant]
     Active Substance: SULFAMETHOXAZOLE\TRIMETHOPRIM
     Dosage: 1/DAY; STRENGTH REPORTED AS 800/160 (UNIT NOT PROVIDED)
     Dates: start: 20160715
  4. NORVIR [Concomitant]
     Active Substance: RITONAVIR
     Dosage: 100 MG, BID
     Dates: start: 20160715
  5. ISENTRESS [Suspect]
     Active Substance: RALTEGRAVIR POTASSIUM
     Indication: HIV INFECTION
     Dosage: 400MG, TWICE DAILY
     Route: 048
     Dates: start: 20160715
  6. TRUVADA [Concomitant]
     Active Substance: EMTRICITABINE\TENOFOVIR DISOPROXIL FUMARATE
     Dosage: 1 TABLET, QD
     Dates: start: 20160715
  7. FUMAFER [Concomitant]
     Active Substance: FERROUS FUMARATE
     Dosage: 1 TABLET, QD
     Dates: start: 20160715
  8. DARUNAVIR [Concomitant]
     Active Substance: DARUNAVIR
     Dosage: 600 MG, BID
     Dates: start: 20160715

REACTIONS (7)
  - Exposure during pregnancy [Recovered/Resolved]
  - Placenta praevia [Unknown]
  - Caesarean section [Unknown]
  - Pneumonia pneumococcal [Unknown]
  - Haemophilus infection [Unknown]
  - Beta haemolytic streptococcal infection [Unknown]
  - Anaemia [Unknown]

NARRATIVE: CASE EVENT DATE: 2016
